FAERS Safety Report 8142447-6 (Version None)
Quarter: 2012Q1

REPORT INFORMATION
  Report Type: 
  Country: None (occurrence: None)
  Receive Date: 20120216
  Receipt Date: 20120209
  Transmission Date: 20120608
  Serious: Yes (Other)
  Sender: FDA-Public Use
  Company Number: JP-JNJFOC-20120112948

PATIENT
  Age: 69 Year
  Sex: Female

DRUGS (4)
  1. WARFARIN SODIUM [Concomitant]
     Indication: HYPERTENSION
     Route: 048
  2. SIMPONI [Suspect]
     Route: 058
     Dates: start: 20111201
  3. PITAVASTATIN CALCIUM [Concomitant]
     Indication: HYPERLIPIDAEMIA
     Route: 048
  4. SIMPONI [Suspect]
     Indication: RHEUMATOID ARTHRITIS
     Route: 058
     Dates: start: 20111101

REACTIONS (4)
  - WHITE BLOOD CELL COUNT INCREASED [None]
  - C-REACTIVE PROTEIN INCREASED [None]
  - THYROID MASS [None]
  - RHABDOMYOLYSIS [None]
